FAERS Safety Report 18843726 (Version 1)
Quarter: 2021Q1

REPORT INFORMATION
  Report Type: Report from Study
  Country: US (occurrence: US)
  Receive Date: 20210203
  Receipt Date: 20210203
  Transmission Date: 20210419
  Serious: No
  Sender: FDA-Public Use
  Company Number: US-EXELIXIS-CABO-20028014

PATIENT
  Sex: Female

DRUGS (1)
  1. CABOMETYX [Suspect]
     Active Substance: CABOZANTINIB S-MALATE
     Indication: RENAL CANCER
     Dosage: 60 MG, QD(MORNING ON AN EMPTY STOMACH)
     Route: 048
     Dates: start: 20200219

REACTIONS (4)
  - Tongue dry [Unknown]
  - Headache [Unknown]
  - Dry skin [Unknown]
  - Diarrhoea [Unknown]
